FAERS Safety Report 14393498 (Version 1)
Quarter: 2018Q1

REPORT INFORMATION
  Report Type: Spontaneous
  Country: US (occurrence: US)
  Receive Date: 20180115
  Receipt Date: 20180115
  Transmission Date: 20180509
  Serious: Yes (Hospitalization)
  Sender: FDA-Public Use
  Company Number: None

PATIENT
  Sex: Female

DRUGS (9)
  1. MAGNESIUM [Concomitant]
     Active Substance: MAGNESIUM
  2. CELLCEPT [Suspect]
     Active Substance: MYCOPHENOLATE MOFETIL\MYCOPHENOLATE MOFETIL HYDROCHLORIDE
     Indication: RENAL TRANSPLANT
     Route: 048
     Dates: start: 20060116
  3. ASPIRIN. [Concomitant]
     Active Substance: ASPIRIN
  4. GENGRAF [Suspect]
     Active Substance: CYCLOSPORINE
     Indication: RENAL TRANSPLANT
     Route: 048
     Dates: start: 20060116
  5. VITAMIN C [Concomitant]
     Active Substance: ASCORBIC ACID
  6. HYDROCO/APAP [Concomitant]
     Active Substance: ACETAMINOPHEN\HYDROCODONE
  7. OYST-CAL D [Concomitant]
  8. IRON [Concomitant]
     Active Substance: IRON
  9. SMZ/TMP [Concomitant]
     Active Substance: SULFAMETHOXAZOLE\TRIMETHOPRIM

REACTIONS (1)
  - Vascular graft [None]
